FAERS Safety Report 17847797 (Version 2)
Quarter: 2020Q2

REPORT INFORMATION
  Report Type: Spontaneous
  Country: FR (occurrence: FR)
  Receive Date: 20200601
  Receipt Date: 20200605
  Transmission Date: 20200714
  Serious: Yes (Hospitalization)
  Sender: FDA-Public Use
  Company Number: FR-BAYER-2020-096765

PATIENT
  Age: 75 Year
  Sex: Female
  Weight: 55 kg

DRUGS (5)
  1. BILASKA [Concomitant]
     Active Substance: BILASTINE
     Dosage: UNK
  2. CIPROFLOXACIN. [Suspect]
     Active Substance: CIPROFLOXACIN
     Indication: PYELONEPHRITIS
     Dosage: UNK
     Route: 048
     Dates: start: 20190323, end: 20190329
  3. ISOBAR [METHYCLOTHIAZIDE;TRIAMTERENE] [Suspect]
     Active Substance: METHYCLOTHIAZIDE\TRIAMTERENE
     Indication: HYPERTENSION
     Dosage: 1 DF, QD
     Route: 048
     Dates: end: 20190328
  4. IOMERON [Suspect]
     Active Substance: IOMEPROL
     Indication: SCAN WITH CONTRAST
     Dosage: UNK
     Route: 051
     Dates: start: 20190323, end: 20190323
  5. CRESTOR [Concomitant]
     Active Substance: ROSUVASTATIN CALCIUM
     Dosage: UNK

REACTIONS (1)
  - Renal failure [Recovered/Resolved]

NARRATIVE: CASE EVENT DATE: 20190323
